FAERS Safety Report 9611004 (Version 1)
Quarter: 2013Q4

REPORT INFORMATION
  Report Type: Report from Study
  Country: US (occurrence: US)
  Receive Date: 20131009
  Receipt Date: 20131009
  Transmission Date: 20140711
  Serious: Yes (Other)
  Sender: FDA-Public Use
  Company Number: US-GLAXOSMITHKLINE-A1044648A

PATIENT
  Age: 33 Year
  Sex: Female

DRUGS (6)
  1. LAMIVUDINE-HBV [Suspect]
     Indication: HEPATITIS B
  2. FLUOROURACIL [Suspect]
     Indication: CHEMOTHERAPY
  3. INVESTIGATIONAL STUDY DRUG [Suspect]
     Indication: PROPHYLAXIS OF NAUSEA AND VOMITING
  4. CYCLOPHOSPHAMIDE [Suspect]
     Indication: CHEMOTHERAPY
  5. EPIRUBICIN [Suspect]
     Indication: CHEMOTHERAPY
  6. BISOPROLOL [Suspect]
     Indication: PRODUCT USED FOR UNKNOWN INDICATION

REACTIONS (1)
  - Febrile neutropenia [Unknown]
